FAERS Safety Report 8952744 (Version 1)
Quarter: 2012Q4

REPORT INFORMATION
  Report Type: 
  Country: IT (occurrence: IT)
  Receive Date: 20121205
  Receipt Date: 20121205
  Transmission Date: 20130627
  Serious: Yes (Hospitalization)
  Sender: FDA-Public Use
  Company Number: IT-TEVA-373000ISR

PATIENT
  Sex: Male

DRUGS (2)
  1. FLUOROURACIL [Suspect]
  2. OXALIPLATIN [Suspect]

REACTIONS (2)
  - Haematuria [Recovering/Resolving]
  - Thrombocytopenia [Recovering/Resolving]
